FAERS Safety Report 10645659 (Version 1)
Quarter: 2014Q4

REPORT INFORMATION
  Report Type: Spontaneous
  Country: US (occurrence: None)
  Receive Date: 20141202
  Receipt Date: 20141202
  Transmission Date: 20150529
  Serious: No
  Sender: FDA-Public Use
  Company Number: 2013TUS002463

PATIENT
  Sex: Male

DRUGS (3)
  1. INVOKANA (CANAGIFLOZIN) [Concomitant]
  2. OSENI [Suspect]
     Active Substance: ALOGLIPTIN BENZOATE\PIOGLITAZONE HYDROCHLORIDE
     Indication: TYPE 2 DIABETES MELLITUS
     Dosage: 1/2 TAB
     Route: 048
     Dates: start: 201311, end: 201311
  3. AMARYL [Concomitant]
     Active Substance: GLIMEPIRIDE

REACTIONS (3)
  - Vision blurred [None]
  - Rash [None]
  - Diplopia [None]

NARRATIVE: CASE EVENT DATE: 201311
